FAERS Safety Report 20552770 (Version 1)
Quarter: 2022Q1

REPORT INFORMATION
  Report Type: Spontaneous
  Country: US (occurrence: US)
  Receive Date: 20220304
  Receipt Date: 20220304
  Transmission Date: 20220423
  Serious: Yes (Hospitalization)
  Sender: FDA-Public Use
  Company Number: US-MYLANLABS-2022M1016533

PATIENT
  Sex: Male

DRUGS (6)
  1. MYCOPHENOLATE MOFETIL [Suspect]
     Active Substance: MYCOPHENOLATE MOFETIL
     Indication: Immunoglobulin G4 related disease
     Dosage: UNK
     Route: 065
  2. MYCOPHENOLATE MOFETIL [Suspect]
     Active Substance: MYCOPHENOLATE MOFETIL
     Indication: Lymphangiectasia
  3. MYCOPHENOLATE MOFETIL [Suspect]
     Active Substance: MYCOPHENOLATE MOFETIL
     Indication: Small intestinal haemorrhage
  4. OCTREOTIDE [Suspect]
     Active Substance: OCTREOTIDE
     Indication: Immunoglobulin G4 related disease
     Dosage: UNK
     Route: 058
  5. OCTREOTIDE [Suspect]
     Active Substance: OCTREOTIDE
     Indication: Lymphangiectasia
  6. OCTREOTIDE [Suspect]
     Active Substance: OCTREOTIDE
     Indication: Small intestinal haemorrhage

REACTIONS (2)
  - Drug ineffective for unapproved indication [Unknown]
  - Off label use [Unknown]
